FAERS Safety Report 6638864-3 (Version None)
Quarter: 2010Q1

REPORT INFORMATION
  Report Type: 
  Country: None (occurrence: None)
  Receive Date: 20100317
  Receipt Date: 20100303
  Transmission Date: 20100710
  Serious: Yes (Hospitalization)
  Sender: FDA-Public Use
  Company Number: JP-PFIZER INC-2010018548

PATIENT
  Age: 60 Year
  Sex: Male

DRUGS (8)
  1. OLMESARTAN MEDOXOMIL [Suspect]
     Indication: ESSENTIAL HYPERTENSION
     Dosage: 20 MG, 1X/DAY
     Route: 048
     Dates: start: 20060527
  2. OLMESARTAN MEDOXOMIL [Suspect]
     Dosage: UNK MG, UNK
     Route: 048
     Dates: start: 20060527
  3. NORVASC [Concomitant]
     Dosage: 5 MG, 1X/DAY
     Route: 048
     Dates: start: 19880101, end: 20060623
  4. NORVASC [Concomitant]
     Dosage: 5 MG, 1X/DAY
     Route: 048
     Dates: start: 20090121, end: 20090807
  5. MEVALOTIN [Suspect]
     Indication: DRUG USE FOR UNKNOWN INDICATION
     Dosage: 5 MG, 1X/DAY
     Route: 048
     Dates: start: 19880101
  6. ALLOPURINOL [Concomitant]
     Dosage: 100 MG, 1X/DAY
     Route: 048
     Dates: start: 19880101
  7. CANDESARTAN CILEXETIL [Concomitant]
     Dosage: 8 MG, 1X/DAY
     Route: 048
     Dates: end: 20060527
  8. CALBLOCK [Concomitant]
     Dosage: 16 MG, 1X/DAY
     Route: 048
     Dates: start: 20060623, end: 20090120

REACTIONS (1)
  - PROSTATE CANCER [None]
